APPROVED DRUG PRODUCT: LACTULOSE
Active Ingredient: LACTULOSE
Strength: 10GM/15ML
Dosage Form/Route: SOLUTION;ORAL
Application: A075911 | Product #001 | TE Code: AA
Applicant: PHARMOBEDIENT CONSULTING LLC
Approved: Feb 21, 2002 | RLD: No | RS: No | Type: RX